FAERS Safety Report 22245581 (Version 1)
Quarter: 2023Q2

REPORT INFORMATION
  Report Type: Spontaneous
  Country: ET (occurrence: ET)
  Receive Date: 20230424
  Receipt Date: 20230424
  Transmission Date: 20230721
  Serious: Yes (Other)
  Sender: FDA-Public Use
  Company Number: ET-002147023-NVSC2023ET087380

PATIENT
  Age: 45 Year
  Sex: Male

DRUGS (1)
  1. ONDANSETRON [Suspect]
     Active Substance: ONDANSETRON
     Indication: Dyspepsia
     Dosage: 8 MG, ONCE/SINGLE
     Route: 042

REACTIONS (2)
  - Kounis syndrome [Unknown]
  - Product use in unapproved indication [Unknown]
